FAERS Safety Report 26010937 (Version 1)
Quarter: 2025Q4

REPORT INFORMATION
  Report Type: Spontaneous
  Country: US (occurrence: None)
  Receive Date: 20251106
  Receipt Date: 20251106
  Transmission Date: 20260118
  Serious: Yes (Hospitalization)
  Sender: FDA-CTU
  Company Number: None

PATIENT
  Sex: Female

DRUGS (11)
  1. REVLIMID [Suspect]
     Active Substance: LENALIDOMIDE
     Indication: Plasma cell myeloma
     Dosage: TAKE 1 CAPSULE BY MOUTH DAILY ON DAYS 1-21, THEN OFF 7 DAYS
     Route: 048
     Dates: start: 20250904
  2. ACID REDUCER TAB 10MG [Concomitant]
  3. ACYCLOVIR CAP 200MG [Concomitant]
  4. ASPIRIN CHW 81MG [Concomitant]
  5. DOXEPIN HCL CAP 100MG [Concomitant]
  6. FOLIC ACID TAB 1MG [Concomitant]
  7. GABAPENTIN [Concomitant]
     Active Substance: GABAPENTIN
  8. OMEPRAZOLE CAP 1 0MG [Concomitant]
  9. POT CHLORIDE TAB 20MEQ ER [Concomitant]
  10. ROPINIROLE TAB 0.25MG [Concomitant]
  11. VITAMIN D3 TAB 25MCG [Concomitant]

REACTIONS (2)
  - Therapy interrupted [None]
  - Diarrhoea [None]
